FAERS Safety Report 10557256 (Version 1)
Quarter: 2014Q4

REPORT INFORMATION
  Report Type: Spontaneous
  Country: GB (occurrence: GB)
  Receive Date: 20141031
  Receipt Date: 20141031
  Transmission Date: 20150529
  Serious: Yes (Other)
  Sender: FDA-Public Use
  Company Number: PHHY2014GB140064

PATIENT
  Age: 54 Year
  Sex: Female
  Weight: 90 kg

DRUGS (6)
  1. CETIRIZINE [Suspect]
     Active Substance: CETIRIZINE HYDROCHLORIDE
     Indication: ALLERGY TO ANIMAL
     Dosage: TAKING EVERY DAY, MAYBE MISSING 2 DAYS OUT OF 7 FOR OVER TEN YEARS
     Route: 048
  2. EVENING PRIMROSE OIL [Concomitant]
     Active Substance: EVENING PRIMROSE OIL
  3. FISH OIL [Concomitant]
     Active Substance: FISH OIL
  4. BEROCCA [Concomitant]
     Active Substance: VITAMINS
  5. LEVOTHYROXINE [Interacting]
     Active Substance: LEVOTHYROXINE
     Dosage: TO BE REASSESSED BY DOCTOR
  6. GARLIC//ALLIUM SATIVUM [Concomitant]

REACTIONS (4)
  - Fatigue [Unknown]
  - Feeling abnormal [Unknown]
  - Somnolence [Unknown]
  - Drug interaction [Unknown]
